FAERS Safety Report 17880067 (Version 1)
Quarter: 2020Q2

REPORT INFORMATION
  Report Type: Spontaneous
  Country: US (occurrence: US)
  Receive Date: 20200609
  Receipt Date: 20200609
  Transmission Date: 20200714
  Serious: Yes (Hospitalization)
  Sender: FDA-Public Use
  Company Number: None

PATIENT
  Age: 64 Year
  Sex: Female

DRUGS (1)
  1. CAPECITABINE 500MG [Suspect]
     Active Substance: CAPECITABINE
     Indication: BREAST CANCER
     Dosage: ?          OTHER FREQUENCY:BID X 14 DAY;?
     Route: 048
     Dates: start: 20190315

REACTIONS (3)
  - Hernia repair [None]
  - Intestinal obstruction [None]
  - Spinal cord neoplasm [None]

NARRATIVE: CASE EVENT DATE: 202002
